FAERS Safety Report 8445835-3 (Version None)
Quarter: 2012Q2

REPORT INFORMATION
  Report Type: 
  Country: None (occurrence: None)
  Receive Date: 20120618
  Receipt Date: 20120604
  Transmission Date: 20120825
  Serious: Yes (Death, Life-Threatening, Other)
  Sender: FDA-Public Use
  Company Number: GB-TEVA-2011005481

PATIENT
  Age: 52 Year
  Sex: Female
  Weight: 95 kg

DRUGS (25)
  1. MABTHERA [Suspect]
     Indication: CHRONIC LYMPHOCYTIC LEUKAEMIA
     Route: 042
     Dates: start: 20110804, end: 20110804
  2. CANDESARTAN CILEXETIL [Concomitant]
  3. RISEDRONIC ACID [Concomitant]
  4. CAMPATH [Concomitant]
     Dates: start: 20100101
  5. LEVOTHYROXINE SODIUM [Concomitant]
  6. METOCLOPRAMIDE [Concomitant]
  7. FLUDARA [Concomitant]
     Dates: start: 20010101
  8. ONDANSETRON [Concomitant]
  9. ATORVASTATIN CALCIUM [Concomitant]
  10. CETIRIZINE HYDROCHLORIDE [Concomitant]
  11. DAPSONE [Concomitant]
  12. ALLOPURINOL [Concomitant]
  13. FLUCONAZOLE [Concomitant]
  14. PREDNISOLONE [Concomitant]
  15. LACTULOSE [Concomitant]
  16. RANITIDINE [Concomitant]
  17. BENDAMUSTINE HYDROCHLORIDE [Suspect]
     Indication: CHRONIC LYMPHOCYTIC LEUKAEMIA
     Route: 042
     Dates: start: 20110804, end: 20110805
  18. ACYCLOVIR [Concomitant]
  19. DEXAMETHASONE [Concomitant]
  20. MONOCLONAL ANTIBODIES [Concomitant]
     Dates: start: 20090101
  21. CALCICHEW D3 FORTE [Concomitant]
  22. PROMETHAZINE [Concomitant]
  23. SENNA-MINT WAF [Concomitant]
  24. OMEPRAZOLE [Concomitant]
  25. HYDROCORTISONE [Concomitant]

REACTIONS (1)
  - PROGRESSIVE MULTIFOCAL LEUKOENCEPHALOPATHY [None]
